FAERS Safety Report 7408106-X (Version None)
Quarter: 2011Q2

REPORT INFORMATION
  Report Type: 
  Country: None (occurrence: None)
  Receive Date: 20110408
  Receipt Date: 20110408
  Transmission Date: 20111010
  Serious: Yes (Other)
  Sender: FDA-Public Use
  Company Number: None

PATIENT
  Age: 84 Year
  Sex: Male
  Weight: 100 kg

DRUGS (1)
  1. NYSTATIN [Suspect]
     Indication: ORAL CANDIDIASIS
     Dosage: 5CC QID PO
     Route: 048
     Dates: start: 20110407, end: 20110407

REACTIONS (7)
  - AGITATION [None]
  - RESPIRATORY GAS EXCHANGE DISORDER [None]
  - DRUG HYPERSENSITIVITY [None]
  - OXYGEN SATURATION DECREASED [None]
  - GASTROINTESTINAL SOUNDS ABNORMAL [None]
  - WHEEZING [None]
  - DYSPNOEA [None]
